FAERS Safety Report 8395689 (Version 2)
Quarter: 2012Q4

REPORT INFORMATION
  Report Type: Report from Study
  Country: FR (occurrence: FR)
  Receive Date: 20120208
  Receipt Date: 20121204
  Transmission Date: 20130627
  Serious: Yes (Other)
  Sender: FDA-Public Use
  Company Number: FR-ROCHE-1036365

PATIENT
  Sex: Female

DRUGS (5)
  1. SOMATROPIN [Suspect]
     Indication: FOETAL GROWTH RESTRICTION
     Dosage: STRENGTH:10MG/2ML
     Route: 058
     Dates: start: 20071201, end: 20110110
  2. LORATADINE [Concomitant]
     Dosage: DOSE:2 SPOONS
     Route: 065
     Dates: start: 20101026
  3. FERROSTRANE [Concomitant]
     Dosage: DOSE:2 SPOONS
     Route: 065
     Dates: start: 20110222
  4. SINGULAIR [Concomitant]
     Route: 065
     Dates: start: 20090728
  5. INCRELEX [Concomitant]

REACTIONS (2)
  - Adenomatous polyposis coli [Unknown]
  - Dysplasia [Unknown]
